FAERS Safety Report 8376435-1 (Version None)
Quarter: 2012Q2

REPORT INFORMATION
  Report Type: 
  Country: None (occurrence: None)
  Receive Date: 20120517
  Receipt Date: 20120502
  Transmission Date: 20120825
  Serious: Yes (Hospitalization)
  Sender: FDA-Public Use
  Company Number: 2012SGN00196

PATIENT
  Age: 28 Year
  Sex: Female

DRUGS (4)
  1. BRENTUXIMAB VEDOTIN (BRENTUXIMAB VEDOTIN) INJECTION [Suspect]
     Indication: HODGKIN'S DISEASE REFRACTORY
     Dosage: UNK, INTRAVENOUS
     Route: 042
     Dates: start: 20120228, end: 20120421
  2. IFOSFAMIDE [Concomitant]
  3. ETOPOSIDE [Concomitant]
  4. CARBOPLATIN [Concomitant]

REACTIONS (6)
  - CHILLS [None]
  - FEBRILE NEUTROPENIA [None]
  - DIARRHOEA [None]
  - VOMITING [None]
  - BONE PAIN [None]
  - NAUSEA [None]
